FAERS Safety Report 11564271 (Version 1)
Quarter: 2015Q3

REPORT INFORMATION
  Report Type: Spontaneous
  Country: US (occurrence: US)
  Receive Date: 20150916
  Receipt Date: 20150916
  Transmission Date: 20151125
  Serious: No
  Sender: FDA-Public Use
  Company Number: US-ELI_LILLY_AND_COMPANY-US200903001780

PATIENT
  Age: 70 Year
  Sex: Female

DRUGS (1)
  1. FORTEO [Suspect]
     Active Substance: TERIPARATIDE
     Dates: start: 200902

REACTIONS (7)
  - Hot flush [Not Recovered/Not Resolved]
  - Arthritis [Not Recovered/Not Resolved]
  - Fibromyalgia [Not Recovered/Not Resolved]
  - Injection site erythema [Recovered/Resolved]
  - Pain in extremity [Not Recovered/Not Resolved]
  - Muscular weakness [Not Recovered/Not Resolved]
  - Muscle spasms [Not Recovered/Not Resolved]

NARRATIVE: CASE EVENT DATE: 2009
